FAERS Safety Report 17776556 (Version 1)
Quarter: 2020Q2

REPORT INFORMATION
  Report Type: Report from Study
  Country: US (occurrence: US)
  Receive Date: 20200513
  Receipt Date: 20200513
  Transmission Date: 20200714
  Serious: Yes (Other)
  Sender: FDA-Public Use
  Company Number: US-PFIZER INC-2020176766

PATIENT

DRUGS (2)
  1. DEPO-MEDROL [Suspect]
     Active Substance: METHYLPREDNISOLONE ACETATE
     Dosage: 1 ML DEPOMEDROL (80 MG) APPLIED DIRECTLY TO THE SURGICAL SITE BY USING A GELFOAM CARRIER
  2. GELFOAM [Suspect]
     Active Substance: GELATIN\THROMBIN HUMAN
     Dosage: 10-CM2 GELFOAM CARRIER

REACTIONS (1)
  - Pseudarthrosis [Unknown]
